FAERS Safety Report 7130280-3 (Version None)
Quarter: 2010Q4

REPORT INFORMATION
  Report Type: 
  Country: None (occurrence: None)
  Receive Date: 20101201
  Receipt Date: 20101119
  Transmission Date: 20110411
  Serious: Yes (Hospitalization)
  Sender: FDA-Public Use
  Company Number: PHHY2010BE78630

PATIENT
  Age: 59 Year
  Sex: Female

DRUGS (7)
  1. ACLASTA [Suspect]
     Dosage: UNK
     Dates: start: 20100705
  2. CURCUMA LONGA [Suspect]
     Indication: MUSCULOSKELETAL PAIN
     Dosage: UNK
     Dates: start: 20100529
  3. LIPITOR [Concomitant]
  4. SERLAIN [Concomitant]
  5. NEXIUM [Concomitant]
  6. NEUROBION [Concomitant]
  7. INSULIN DETEMIR [Concomitant]

REACTIONS (3)
  - ABDOMINAL PAIN UPPER [None]
  - CHOLECYSTITIS ACUTE [None]
  - HEPATITIS TOXIC [None]
